FAERS Safety Report 20691394 (Version 2)
Quarter: 2022Q2

REPORT INFORMATION
  Report Type: Report from Study
  Country: US (occurrence: US)
  Receive Date: 20220408
  Receipt Date: 20220420
  Transmission Date: 20220720
  Serious: Yes (Death, Hospitalization, Other)
  Sender: FDA-Public Use
  Company Number: US-BRISTOL-MYERS SQUIBB COMPANY-2022-012457

PATIENT
  Age: 84 Year
  Sex: Female
  Weight: 62.6 kg

DRUGS (6)
  1. VIDAZA [Suspect]
     Active Substance: AZACITIDINE
     Indication: Product used for unknown indication
     Route: 065
     Dates: start: 20220101, end: 20220101
  2. VIDAZA [Suspect]
     Active Substance: AZACITIDINE
     Route: 065
     Dates: start: 2022
  3. VENCLEXTA [Suspect]
     Active Substance: VENETOCLAX
     Indication: Acute myeloid leukaemia
     Dosage: 100 MG (100 MG,-
     Route: 048
     Dates: start: 20220129
  4. VENCLEXTA [Suspect]
     Active Substance: VENETOCLAX
     Dosage: WITH FOOD AND A GLASS  OF WATER
     Route: 048
     Dates: start: 2022, end: 2022
  5. VENCLEXTA [Suspect]
     Active Substance: VENETOCLAX
     Route: 048
     Dates: start: 202202, end: 20220214
  6. ASPIRIN [Concomitant]
     Active Substance: ASPIRIN
     Indication: Product used for unknown indication
     Route: 065

REACTIONS (19)
  - Respiratory failure [Fatal]
  - Traumatic haematoma [Unknown]
  - Renal disorder [Unknown]
  - Leukocytosis [Unknown]
  - Proctitis [Unknown]
  - Essential hypertension [Unknown]
  - Contusion [Unknown]
  - Febrile neutropenia [Unknown]
  - Cytopenia [Unknown]
  - Skin haemorrhage [Unknown]
  - Thrombocytopenia [Unknown]
  - Anaemia [Unknown]
  - Pancytopenia [Unknown]
  - Acute myeloid leukaemia [Unknown]
  - Asthenia [Unknown]
  - Abdominal pain [Unknown]
  - Renal disorder [Recovering/Resolving]
  - Fall [Recovering/Resolving]
  - Platelet count decreased [Recovering/Resolving]

NARRATIVE: CASE EVENT DATE: 20220101
